FAERS Safety Report 16220225 (Version 1)
Quarter: 2019Q2

REPORT INFORMATION
  Report Type: Spontaneous
  Country: US (occurrence: US)
  Receive Date: 20190420
  Receipt Date: 20190420
  Transmission Date: 20190711
  Serious: Yes (Death, Other)
  Sender: FDA-Public Use
  Company Number: PHHY2019US091129

PATIENT
  Age: 71 Year
  Sex: Female

DRUGS (2)
  1. MYCOPHENOLATE MOFETIL. [Suspect]
     Active Substance: MYCOPHENOLATE MOFETIL
     Indication: AUTOIMMUNE MYOCARDITIS
     Route: 065
  2. IPILIMUMAB [Concomitant]
     Active Substance: IPILIMUMAB
     Indication: IMMUNOSUPPRESSANT DRUG THERAPY
     Dosage: UNK,
     Route: 065

REACTIONS (6)
  - General physical health deterioration [Unknown]
  - Product use in unapproved indication [Unknown]
  - Disseminated intravascular coagulation [Fatal]
  - Bacteraemia [Fatal]
  - Propionibacterium infection [Fatal]
  - Multiple organ dysfunction syndrome [Fatal]
